FAERS Safety Report 6504129-3 (Version None)
Quarter: 2009Q4

REPORT INFORMATION
  Report Type: 
  Country: None (occurrence: None)
  Receive Date: 20091217
  Receipt Date: 20091209
  Transmission Date: 20100525
  Serious: Yes (Life-Threatening, Hospitalization)
  Sender: FDA-Public Use
  Company Number: US-JNJFOC-20090607665

PATIENT
  Sex: Female
  Weight: 12.7 kg

DRUGS (6)
  1. TYLENOL (CAPLET) [Suspect]
     Indication: MALAISE
     Route: 048
  2. TYLENOL (CAPLET) [Suspect]
     Indication: PYREXIA
     Route: 048
  3. TYLENOL (CAPLET) [Suspect]
     Route: 048
  4. TYLENOL (CAPLET) [Suspect]
     Indication: PYREXIA
     Dosage: 325 MG UNKNOWN DATES OR DURATION
     Route: 048
  5. AMOXICILLIN [Concomitant]
     Dosage: PRIOR TO 29-DEC-1993
     Route: 065
  6. LORABID [Concomitant]
     Dosage: PRIOR TO 28-DEC-1993
     Route: 065

REACTIONS (2)
  - ACCIDENTAL OVERDOSE [None]
  - HEPATIC FAILURE [None]
